FAERS Safety Report 7233434-0 (Version None)
Quarter: 2011Q1

REPORT INFORMATION
  Report Type: 
  Country: None (occurrence: None)
  Receive Date: 20110119
  Receipt Date: 20110106
  Transmission Date: 20110831
  Serious: Yes (Hospitalization)
  Sender: FDA-Public Use
  Company Number: DE-ELI_LILLY_AND_COMPANY-DE201101001216

PATIENT
  Age: 74 Year
  Sex: Female

DRUGS (3)
  1. LORAZEPAM [Concomitant]
  2. ZYPREXA [Suspect]
     Route: 048
  3. OXAZEPAM [Concomitant]

REACTIONS (1)
  - PAGET'S DISEASE OF THE VULVA [None]
